FAERS Safety Report 7119178-4 (Version None)
Quarter: 2010Q4

REPORT INFORMATION
  Report Type: 
  Country: None (occurrence: None)
  Receive Date: 20101123
  Receipt Date: 20101117
  Transmission Date: 20110411
  Serious: Yes (Disabling)
  Sender: FDA-Public Use
  Company Number: FR-ROCHE-743120

PATIENT
  Sex: Female

DRUGS (2)
  1. PEGASYS [Suspect]
     Route: 058
     Dates: start: 20100101, end: 20100601
  2. COPEGUS [Suspect]
     Route: 048
     Dates: start: 20100101, end: 20100601

REACTIONS (1)
  - EXTREMITY NECROSIS [None]
